FAERS Safety Report 9671068 (Version 2)
Quarter: 2013Q4

REPORT INFORMATION
  Report Type: Spontaneous
  Country: US (occurrence: US)
  Receive Date: 20131106
  Receipt Date: 20131220
  Transmission Date: 20140711
  Serious: Yes (Death)
  Sender: FDA-Public Use
  Company Number: US-PFIZER INC-2013313505

PATIENT
  Age: 92 Year
  Sex: Female

DRUGS (2)
  1. AROMASIN [Suspect]
     Indication: BREAST CANCER METASTATIC
     Dosage: 25 MG, DAILY
     Route: 048
     Dates: start: 201301
  2. AFINITOR [Concomitant]
     Indication: BREAST CANCER
     Dosage: 5 MG, UNK
     Dates: start: 201301, end: 201309

REACTIONS (2)
  - Disease progression [Fatal]
  - Breast cancer metastatic [Fatal]
